FAERS Safety Report 10564688 (Version 1)
Quarter: 2014Q4

REPORT INFORMATION
  Report Type: Spontaneous
  Country: DE (occurrence: DE)
  Receive Date: 20141104
  Receipt Date: 20141104
  Transmission Date: 20150529
  Serious: Yes (Other)
  Sender: FDA-Public Use
  Company Number: DE-JNJFOC-20141014769

PATIENT
  Sex: Female

DRUGS (3)
  1. GRIPPEIMPFSTOFF [Concomitant]
     Active Substance: INFLUENZA VIRUS VACCINE
     Indication: IMMUNISATION
     Dosage: ONCE BET WEEK 0 AND 8;GESTATION PERIOD AT TIME OF EXPOSURE:1 TRIMESTER; ADD INFO ON DRUG:0.-32. GW
     Route: 064
     Dates: start: 20101005, end: 20101130
  2. FOLSAURE [Concomitant]
     Active Substance: FOLIC ACID
     Indication: PROPHYLAXIS OF NEURAL TUBE DEFECT
     Dosage: GESTATIONAL PERIOD AT TIME OF EXPOSURE: 1 TRIMESTER; ADD INFO ON DRUG: 0.-32.GW
     Route: 064
     Dates: start: 20101005
  3. IBUPROFEN. [Suspect]
     Active Substance: IBUPROFEN
     Indication: MIGRAINE
     Dosage: GESTATIONAL WEEK 32  0 DAYS; 600 MG/D, F
     Route: 064
     Dates: start: 20101005

REACTIONS (3)
  - Ductus arteriosus stenosis foetal [Recovered/Resolved]
  - Foetal exposure during pregnancy [Unknown]
  - Tricuspid valve incompetence [Recovered/Resolved]

NARRATIVE: CASE EVENT DATE: 20101005
